FAERS Safety Report 7307425-5 (Version None)
Quarter: 2011Q1

REPORT INFORMATION
  Report Type: 
  Country: None (occurrence: None)
  Receive Date: 20110210
  Receipt Date: 20110131
  Transmission Date: 20110831
  Serious: Yes (Hospitalization)
  Sender: FDA-Public Use
  Company Number: 817047

PATIENT
  Age: 3 Year
  Sex: Female

DRUGS (6)
  1. (MILRNONE) [Concomitant]
  2. DOBUTAMINE HCL [Concomitant]
  3. MIDAZOLAM [Concomitant]
  4. FENTANYL CITRATE [Concomitant]
  5. PRECEDEX (DEXMEDETOMIDINE HYDROCHLORIDE) INJECTION (DEXEMEDETOMIDINE H [Suspect]
     Indication: SEDATION
     Dosage: 0.6 MCG/KG/HOUR, INTRAVENOUS
     Route: 042
  6. (CISATRACURIUM) [Concomitant]

REACTIONS (4)
  - SINUS ARRHYTHMIA [None]
  - MITRAL VALVE INCOMPETENCE [None]
  - OFF LABEL USE [None]
  - ARRHYTHMIA SUPRAVENTRICULAR [None]
